FAERS Safety Report 6694605-5 (Version None)
Quarter: 2010Q2

REPORT INFORMATION
  Report Type: 
  Country: None (occurrence: None)
  Receive Date: 20100423
  Receipt Date: 20100416
  Transmission Date: 20101027
  Serious: Yes (Death, Other)
  Sender: FDA-Public Use
  Company Number: US-CEPHALON-2010002246

PATIENT
  Sex: Male

DRUGS (1)
  1. PROVIGIL [Suspect]
     Route: 048

REACTIONS (3)
  - ADRENAL DISORDER [None]
  - COLON INJURY [None]
  - DEATH [None]
